FAERS Safety Report 6436051-5 (Version None)
Quarter: 2009Q4

REPORT INFORMATION
  Report Type: 
  Country: None (occurrence: None)
  Receive Date: 20091111
  Receipt Date: 20091105
  Transmission Date: 20100525
  Serious: Yes (Other)
  Sender: FDA-Public Use
  Company Number: CH-BAYER-200938187GPV

PATIENT
  Age: 0 Hour
  Sex: Female
  Weight: 2.16 kg

DRUGS (2)
  1. ALEVE [Suspect]
     Indication: DRUG USE FOR UNKNOWN INDICATION
     Dosage: 3 DOSES ALEVE IN TOTAL
     Route: 064
     Dates: start: 20081028, end: 20081029
  2. ALCOHOL [Concomitant]
     Indication: DRUG USE FOR UNKNOWN INDICATION

REACTIONS (1)
  - FOETAL GROWTH RETARDATION [None]
